FAERS Safety Report 8861468 (Version 1)
Quarter: 2012Q4

REPORT INFORMATION
  Report Type: Spontaneous
  Country: US (occurrence: None)
  Receive Date: 20121024
  Receipt Date: 20121024
  Transmission Date: 20130627
  Serious: Yes (Other)
  Sender: FDA-Public Use
  Company Number: 100813-009133

PATIENT
  Sex: Female

DRUGS (2)
  1. SHEER COVER MINERAL FOUNDATION SPF 15 [Suspect]
     Dosage: once dermal
     Dates: start: 20100310
  2. UNSPECIFIED INGREDIENT [Suspect]
     Dosage: once dermal
     Dates: start: 20100310

REACTIONS (2)
  - Dyspnoea [None]
  - Swelling face [None]
